FAERS Safety Report 15334031 (Version 2)
Quarter: 2020Q1

REPORT INFORMATION
  Report Type: Spontaneous
  Country: US (occurrence: US)
  Receive Date: 20180830
  Receipt Date: 20200318
  Transmission Date: 20200409
  Serious: No
  Sender: FDA-Public Use
  Company Number: US-ASTRAZENECA-2018SE98519

PATIENT
  Age: 923 Month
  Sex: Female
  Weight: 81.6 kg

DRUGS (2)
  1. FASLODEX [Suspect]
     Active Substance: FULVESTRANT
     Indication: BREAST CANCER
     Route: 030
     Dates: start: 201803
  2. IBRANCE [Suspect]
     Active Substance: PALBOCICLIB
     Indication: BREAST CANCER
     Route: 048
     Dates: start: 2018

REACTIONS (8)
  - Anxiety [Unknown]
  - Balance disorder [Unknown]
  - Gait disturbance [Unknown]
  - Stress [Unknown]
  - Sleep disorder [Unknown]
  - Mass [Unknown]
  - Injection site pain [Unknown]
  - Injection site nodule [Not Recovered/Not Resolved]

NARRATIVE: CASE EVENT DATE: 201806
